FAERS Safety Report 18861080 (Version 3)
Quarter: 2022Q2

REPORT INFORMATION
  Report Type: Report from Study
  Country: PA (occurrence: PA)
  Receive Date: 20210208
  Receipt Date: 20220427
  Transmission Date: 20220721
  Serious: Yes (Hospitalization, Other)
  Sender: FDA-Public Use
  Company Number: PA-NOVARTISPH-NVSC2020PA337771

PATIENT
  Age: 46 Year
  Sex: Female

DRUGS (2)
  1. KISQALI [Suspect]
     Active Substance: RIBOCICLIB
     Indication: Breast cancer
     Dosage: 600 MG, QD (3 DF)
     Route: 048
     Dates: start: 20200401
  2. ANASTROZOLE [Suspect]
     Active Substance: ANASTROZOLE
     Indication: Product used for unknown indication
     Dosage: 1 DF
     Route: 065

REACTIONS (8)
  - COVID-19 [Recovering/Resolving]
  - Headache [Unknown]
  - Lung neoplasm malignant [Recovering/Resolving]
  - Second primary malignancy [Recovering/Resolving]
  - Agitation [Unknown]
  - Productive cough [Recovering/Resolving]
  - Dyspnoea [Unknown]
  - Decreased activity [Unknown]

NARRATIVE: CASE EVENT DATE: 20200401
